FAERS Safety Report 13613929 (Version 5)
Quarter: 2021Q2

REPORT INFORMATION
  Report Type: Spontaneous
  Country: FR (occurrence: FR)
  Receive Date: 20170606
  Receipt Date: 20210601
  Transmission Date: 20210716
  Serious: Yes (Hospitalization, Other)
  Sender: FDA-Public Use
  Company Number: FR-BAXTER-2017BAX022287

PATIENT
  Age: 61 Year
  Sex: Female

DRUGS (10)
  1. AMOXICILLIN. [Suspect]
     Active Substance: AMOXICILLIN
     Indication: HELICOBACTER INFECTION
     Dosage: TRIPLE THERAPY
     Route: 065
     Dates: start: 201206
  2. CLARITHROMYCIN. [Suspect]
     Active Substance: CLARITHROMYCIN
     Dosage: TRIPLE THERAPY
     Route: 065
     Dates: start: 201206
  3. METRONIDAZOLE BAXTER 0,5 POUR CENT, SOLUTION INJECTABLE EN POCHE [Suspect]
     Active Substance: METRONIDAZOLE
     Indication: HELICOBACTER INFECTION
     Dosage: TRIPLE THERAPY
     Route: 065
     Dates: start: 201206
  4. METRONIDAZOLE BAXTER 0,5 POUR CENT, SOLUTION INJECTABLE EN POCHE [Suspect]
     Active Substance: METRONIDAZOLE
     Dosage: TRIPLE THERAPY
     Route: 065
     Dates: start: 201206
  5. CLARITHROMYCIN. [Suspect]
     Active Substance: CLARITHROMYCIN
     Indication: HELICOBACTER INFECTION
     Dosage: TRIPLE THERAPY
     Route: 065
     Dates: start: 201206
  6. AMOXICILLIN. [Suspect]
     Active Substance: AMOXICILLIN
     Dosage: TRIPLE THERAPY
     Route: 065
     Dates: start: 201206
  7. OMEPRAZOLE. [Concomitant]
     Active Substance: OMEPRAZOLE
     Route: 065
     Dates: start: 201206
  8. OMEPRAZOLE. [Concomitant]
     Active Substance: OMEPRAZOLE
     Indication: HELICOBACTER INFECTION
     Route: 065
     Dates: start: 201206
  9. CORTISONE [Concomitant]
     Active Substance: CORTISONE
     Indication: ALLERGIC SINUSITIS
     Route: 055
     Dates: start: 201102
  10. CLARITHROMYCIN. [Suspect]
     Active Substance: CLARITHROMYCIN
     Dosage: TRIPLE THERAPY
     Route: 065
     Dates: start: 201206

REACTIONS (1)
  - Mania [Recovered/Resolved]

NARRATIVE: CASE EVENT DATE: 201206
